FAERS Safety Report 5153468-X (Version None)
Quarter: 2006Q4

REPORT INFORMATION
  Report Type: 
  Country: None (occurrence: None)
  Receive Date: 20061117
  Receipt Date: 20060720
  Transmission Date: 20070319
  Serious: Yes (Hospitalization)
  Sender: FDA-Public Use
  Company Number: FR-ABBOTT-06P-056-0338493-00

PATIENT
  Age: 12 Year
  Sex: Female

DRUGS (8)
  1. DEPAKENE [Suspect]
     Indication: EPILEPSY
     Route: 048
     Dates: start: 19980101, end: 20060601
  2. DEPAKENE [Suspect]
     Route: 048
     Dates: start: 20060601, end: 20060601
  3. DEPAKENE [Suspect]
     Route: 048
     Dates: start: 20060601
  4. FOSPHENYTOIN SODIUM [Suspect]
     Indication: EPILEPSY
     Route: 042
     Dates: start: 20060620, end: 20060621
  5. DIAZEPAM [Concomitant]
     Indication: DRUG USE FOR UNKNOWN INDICATION
     Route: 048
     Dates: start: 20030301
  6. LEVETIRACETAM [Concomitant]
     Indication: EPILEPSY
     Route: 048
     Dates: start: 20020101
  7. CALCIFORTE [Concomitant]
     Indication: DRUG USE FOR UNKNOWN INDICATION
     Route: 048
  8. SUCRALFATE [Concomitant]
     Indication: DRUG USE FOR UNKNOWN INDICATION
     Route: 048

REACTIONS (7)
  - DRUG INEFFECTIVE [None]
  - EPILEPSY [None]
  - HAEMOGLOBIN DECREASED [None]
  - LEUKOPENIA [None]
  - PETECHIAE [None]
  - THROMBOCYTOPENIA [None]
  - WHITE BLOOD CELL COUNT DECREASED [None]
